FAERS Safety Report 24759964 (Version 1)
Quarter: 2024Q4

REPORT INFORMATION
  Report Type: Spontaneous
  Country: CN (occurrence: CN)
  Receive Date: 20241220
  Receipt Date: 20241220
  Transmission Date: 20250114
  Serious: Yes (Life-Threatening, Hospitalization, Other)
  Sender: BAXTER
  Company Number: None

PATIENT
  Age: 2 Year
  Sex: Male
  Weight: 14.4 kg

DRUGS (8)
  1. CYCLOPHOSPHAMIDE [Suspect]
     Active Substance: CYCLOPHOSPHAMIDE
     Indication: Chemotherapy
     Dosage: 0.63 G, ONE TIME IN ONE DAY, DILUTED WITH 250 ML OF GLUCOSE AND SODIUM CHLORIDE (4:1)-INJECTION
     Route: 041
     Dates: start: 20240924, end: 20240924
  2. CYCLOPHOSPHAMIDE [Suspect]
     Active Substance: CYCLOPHOSPHAMIDE
     Indication: Acute lymphocytic leukaemia
  3. SODIUM CHLORIDE [Suspect]
     Active Substance: SODIUM CHLORIDE
     Indication: Medication dilution
     Dosage: 250 ML SODIUM CHLORIDE, 250 ML GLUCOSE (1:4), ONE TIME IN ONE DAY, USED TO DILUTE 0.63 G OF CYCLOPHO
     Route: 041
     Dates: start: 20240924, end: 20240924
  4. SODIUM CHLORIDE [Suspect]
     Active Substance: SODIUM CHLORIDE
     Dosage: 100 ML SODIUM CHLORIDE, 100 ML GLUCOSE (1:4), TWO TIMES IN ONE DAY, USED TO DILUTE 0.63 G OF CYTARAB
     Route: 041
     Dates: start: 20240924, end: 20240927
  5. DEXTROSE [Suspect]
     Active Substance: DEXTROSE MONOHYDRATE
     Indication: Medication dilution
     Dosage: 250 ML GLUCOSE, 250 ML SODIUM CHLORIDE (4:1), ONE TIME IN ONE DAY, USED TO DILUTE 0.63 G OF CYCLOPHO
     Route: 041
     Dates: start: 20240924, end: 20240924
  6. DEXTROSE [Suspect]
     Active Substance: DEXTROSE MONOHYDRATE
     Dosage: 100 ML GLUCOSE, 100 ML SODIUM CHLORIDE (4:1), TWO TIMES IN ONE DAY, USED TO DILUTE 0.63 G OF CYTARAB
     Route: 041
     Dates: start: 20240924, end: 20240927
  7. CYTARABINE [Suspect]
     Active Substance: CYTARABINE
     Indication: Chemotherapy
     Dosage: 0.63 G, TWO TIMES IN ONE DAY, DILUTED WITH 100 ML OF GLUCOSE AND SODIUM CHLORIDE (4:1), Q12H-INJECTI
     Route: 041
     Dates: start: 20240924, end: 20240927
  8. CYTARABINE [Suspect]
     Active Substance: CYTARABINE
     Indication: Acute lymphocytic leukaemia

REACTIONS (1)
  - Myelosuppression [Recovering/Resolving]

NARRATIVE: CASE EVENT DATE: 20241004
